FAERS Safety Report 8855032 (Version 10)
Quarter: 2014Q4

REPORT INFORMATION
  Report Type: Spontaneous
  Country: GB (occurrence: GB)
  Receive Date: 20121023
  Receipt Date: 20141107
  Transmission Date: 20150529
  Serious: Yes (Hospitalization, Disabling, Other)
  Sender: FDA-Public Use
  Company Number: PHFR2012GB003768

PATIENT
  Age: 55 Year
  Sex: Male
  Weight: 72 kg

DRUGS (7)
  1. CLOZARIL [Suspect]
     Active Substance: CLOZAPINE
     Dosage: 300 MG, DAILY
     Route: 048
  2. LITHIUM CARBONATE. [Concomitant]
     Active Substance: LITHIUM CARBONATE
     Indication: AFFECTIVE DISORDER
     Dosage: 800 MG, QD
     Route: 065
  3. OMEPRAZOLE. [Concomitant]
     Active Substance: OMEPRAZOLE
     Indication: PRODUCT USED FOR UNKNOWN INDICATION
     Dosage: 40 MG, (PER DAY)
     Route: 048
  4. CLOZARIL [Suspect]
     Active Substance: CLOZAPINE
     Dosage: 125 MG, QD
     Route: 048
  5. CLOZARIL [Suspect]
     Active Substance: CLOZAPINE
     Indication: SCHIZOPHRENIA
     Dosage: 500 MG, (PER DAY)
     Route: 048
     Dates: start: 20100524
  6. CLOZARIL [Suspect]
     Active Substance: CLOZAPINE
     Dosage: 500 MG, (200 MG MORNING AND 300 MG NOCTE) DAILY
     Route: 048
  7. LITHIUM CARBONATE. [Concomitant]
     Active Substance: LITHIUM CARBONATE
     Dosage: 700 MG, (PER DAY)
     Route: 048

REACTIONS (23)
  - Benign prostatic hyperplasia [Not Recovered/Not Resolved]
  - Sedation [Recovering/Resolving]
  - Thrombocytopenia [Not Recovered/Not Resolved]
  - Central obesity [Not Recovered/Not Resolved]
  - Hypertension [Not Recovered/Not Resolved]
  - Salivary hypersecretion [Not Recovered/Not Resolved]
  - Neutrophil count decreased [Unknown]
  - White blood cell count increased [Unknown]
  - Effusion [Recovering/Resolving]
  - Pollakiuria [Not Recovered/Not Resolved]
  - Nocturia [Unknown]
  - Pneumonia [Recovered/Resolved]
  - Urinary incontinence [Not Recovered/Not Resolved]
  - Sleep disorder [Recovering/Resolving]
  - Neuroleptic malignant syndrome [Unknown]
  - Faeces hard [Recovering/Resolving]
  - Neutrophil count increased [Unknown]
  - Pyrexia [Unknown]
  - Malaise [Recovering/Resolving]
  - Seizure [Recovered/Resolved]
  - Lower respiratory tract infection [Unknown]
  - Abdominal pain upper [Unknown]
  - Constipation [Recovering/Resolving]

NARRATIVE: CASE EVENT DATE: 20120628
